FAERS Safety Report 9026031 (Version 1)
Quarter: 2013Q1

REPORT INFORMATION
  Report Type: Report from Study
  Country: US (occurrence: US)
  Receive Date: 20130122
  Receipt Date: 20130122
  Transmission Date: 20140127
  Serious: Yes (Hospitalization, Other)
  Sender: FDA-Public Use
  Company Number: US-ASTRAZENECA-2013SE02789

PATIENT
  Age: 47 Year
  Sex: Female

DRUGS (22)
  1. SYMBICORT PMDI [Suspect]
     Dosage: 1 INHALATION, DAILY
     Route: 055
  2. METOPROLOL [Suspect]
     Route: 048
  3. TOPROL XL [Suspect]
     Route: 048
  4. CRESTOR [Suspect]
     Route: 048
  5. IMDUR [Concomitant]
  6. IMDUR [Concomitant]
  7. ASPIRIN [Concomitant]
     Route: 048
  8. CARAFATE [Concomitant]
  9. CYMBALTA [Concomitant]
  10. ENDOCET [Concomitant]
     Dosage: 10/650 EVERY 6 HOURS,PRN
  11. FLOVENT DISKETTE [Concomitant]
     Dosage: 1 ,DAILY
     Route: 055
  12. METFORMIN [Concomitant]
  13. NOVOLOG [Concomitant]
     Dosage: 70/30
  14. NEURONTIN [Concomitant]
  15. NITROSTAT [Concomitant]
     Dosage: 0.4,PRN
     Route: 060
  16. PLAVIX [Concomitant]
  17. SOMA [Concomitant]
  18. STOOL SOFTNER [Concomitant]
     Dosage: PRN
  19. XANAX [Concomitant]
  20. ZANTAC [Concomitant]
  21. BENICAR [Concomitant]
  22. COZAAR [Concomitant]

REACTIONS (9)
  - Hypotension [Unknown]
  - Angina pectoris [Unknown]
  - Cardiovascular disorder [Unknown]
  - Secondary hypertension [Unknown]
  - Diabetes mellitus [Unknown]
  - Anxiety [Unknown]
  - Myocardial infarction [Unknown]
  - Cardiac enzymes increased [Recovered/Resolved]
  - Intentional drug misuse [Unknown]
